FAERS Safety Report 6108625-2 (Version None)
Quarter: 2009Q1

REPORT INFORMATION
  Report Type: 
  Country: None (occurrence: None)
  Receive Date: 20090305
  Receipt Date: 20090223
  Transmission Date: 20090719
  Serious: Yes (Disabling)
  Sender: FDA-Public Use
  Company Number: OSCN-NO-0902S-0113

PATIENT
  Age: 67 Year
  Sex: Female

DRUGS (17)
  1. OMNISCAN [Suspect]
     Indication: DRUG USE FOR UNKNOWN INDICATION
     Dosage: 10 ML, SINGLE DOSE, I.V.; 13 ML, I.V.
     Route: 042
     Dates: start: 20060126, end: 20060126
  2. OMNISCAN [Suspect]
     Indication: DRUG USE FOR UNKNOWN INDICATION
     Dosage: 10 ML, SINGLE DOSE, I.V.; 13 ML, I.V.
     Route: 042
     Dates: start: 20060411, end: 20060411
  3. FERROUS SULPHATE (FERRO DURETTER) [Concomitant]
  4. ACETYLSALICYLIC ACID (MAGNYL) [Concomitant]
  5. DILTIAZEM HYDROCHLORIDE (CARDIL) [Concomitant]
  6. BENDROFLUMETHIAZIDE (CENTYL) [Concomitant]
  7. PROZOSIN (HEXAPRESS) [Concomitant]
  8. METOPROLOL (METOPROLOLSUCCINAT) [Concomitant]
  9. METHOTREXATE [Concomitant]
  10. FOLIC ACID (FOLIMET) [Concomitant]
  11. GLUCOSAMIN SULFATE SODIUM CHLORIDE (GLUCOSAMIN) [Concomitant]
  12. SIMVASTATIN [Concomitant]
  13. PARACETAMOL (PINEX) [Concomitant]
  14. FUROSEMIDE (FURIX) [Concomitant]
  15. POTASSIUM CHLORIDE (KALEORID) [Concomitant]
  16. ZOPICLONE (IMOZOP) [Concomitant]
  17. PREDNISONE (PREDNISON) [Concomitant]

REACTIONS (4)
  - NEPHROGENIC SYSTEMIC FIBROSIS [None]
  - RENAL ONCOCYTOMA [None]
  - RHEUMATOID ARTHRITIS [None]
  - WALKING AID USER [None]
